FAERS Safety Report 9482553 (Version 1)
Quarter: 2013Q3

REPORT INFORMATION
  Report Type: Spontaneous
  Country: US (occurrence: US)
  Receive Date: 20130828
  Receipt Date: 20130828
  Transmission Date: 20140515
  Serious: No
  Sender: FDA-Public Use
  Company Number: US-SANOFI-AVENTIS-2013SA072250

PATIENT
  Sex: Male

DRUGS (1)
  1. ELIGARD [Suspect]
     Route: 065

REACTIONS (6)
  - Fall [Unknown]
  - Injury [Unknown]
  - Mobility decreased [Unknown]
  - Gait disturbance [Unknown]
  - Asthenia [Unknown]
  - Blood pressure decreased [Unknown]
